FAERS Safety Report 6153562-0 (Version None)
Quarter: 2009Q2

REPORT INFORMATION
  Report Type: 
  Country: None (occurrence: None)
  Receive Date: 20090409
  Receipt Date: 20090409
  Transmission Date: 20091009
  Serious: Yes (Other)
  Sender: FDA-Public Use
  Company Number: None

PATIENT
  Age: 30 Year
  Sex: Female
  Weight: 70 kg

DRUGS (3)
  1. BUPROPION HCL [Suspect]
     Indication: DEPRESSION
     Dosage: 150 MG TWICE A DAY PO
     Route: 048
  2. ZOLPIDEM TARTRATE [Suspect]
     Indication: SLEEP DISORDER
     Dosage: ZOLPIDEM PO
     Route: 048
  3. VISTARIL [Concomitant]

REACTIONS (3)
  - ANGIOEDEMA [None]
  - ERYTHEMA [None]
  - OROPHARYNGEAL PAIN [None]
